FAERS Safety Report 11008905 (Version 1)
Quarter: 2015Q2

REPORT INFORMATION
  Report Type: Spontaneous
  Country: US (occurrence: US)
  Receive Date: 20150410
  Receipt Date: 20150410
  Transmission Date: 20150821
  Serious: No
  Sender: FDA-Public Use
  Company Number: US-BAUSCH-SYM-2014-23170

PATIENT
  Age: 58 Year
  Sex: Male
  Weight: 68.1 kg

DRUGS (5)
  1. ALDARA [Suspect]
     Active Substance: IMIQUIMOD
     Dosage: APPLIED AT NIGHT
     Route: 061
     Dates: start: 20140706, end: 20140706
  2. LEVOTHYROXINE [Concomitant]
     Active Substance: LEVOTHYROXINE
     Indication: PRODUCT USED FOR UNKNOWN INDICATION
  3. ALDARA [Suspect]
     Active Substance: IMIQUIMOD
     Indication: BASAL CELL CARCINOMA
     Dosage: APPLIED NIGHTLY
     Route: 061
     Dates: start: 20140622, end: 20140626
  4. ALDARA [Suspect]
     Active Substance: IMIQUIMOD
     Dosage: APPLIED NIGHTLY
     Route: 061
     Dates: start: 20140629, end: 20140703
  5. ATORVASTATIN [Concomitant]
     Active Substance: ATORVASTATIN
     Indication: PRODUCT USED FOR UNKNOWN INDICATION

REACTIONS (8)
  - Migraine [Not Recovered/Not Resolved]
  - Cold sweat [Recovered/Resolved]
  - Lacrimation increased [Not Recovered/Not Resolved]
  - Regurgitation [Recovered/Resolved]
  - Vomiting [Recovered/Resolved]
  - Dizziness [Recovered/Resolved]
  - Pyrexia [Recovered/Resolved]
  - Pain [Recovered/Resolved]

NARRATIVE: CASE EVENT DATE: 20140707
